FAERS Safety Report 4815364-4 (Version None)
Quarter: 2005Q4

REPORT INFORMATION
  Report Type: 
  Country: None (occurrence: None)
  Receive Date: 20051027
  Receipt Date: 20051013
  Transmission Date: 20060501
  Serious: Yes (Life-Threatening, Hospitalization)
  Sender: FDA-Public Use
  Company Number: S05-USA-03614-01

PATIENT
  Age: 53 Year
  Sex: Female
  Weight: 68.0396 kg

DRUGS (11)
  1. LEXAPRO [Suspect]
     Indication: DEPRESSION
     Dosage: 20 MG QD PO
     Route: 048
     Dates: start: 20050223, end: 20050416
  2. MAXZIDE [Suspect]
     Indication: HYPERTENSION
     Dosage: 75 MG PO
     Route: 048
     Dates: start: 19800101, end: 20050101
  3. MAVIK [Suspect]
     Indication: HYPERTENSION
     Dosage: 8 MG PO
     Route: 048
     Dates: start: 19800101, end: 20050101
  4. TRAZODONE HCL [Concomitant]
  5. INDOCIN [Concomitant]
  6. REGLAN [Concomitant]
  7. ERYTHROMYCIN [Concomitant]
  8. PREMARIN [Concomitant]
  9. ZYRTEC [Concomitant]
  10. SINGULAIR [Concomitant]
  11. PROVIGIL [Concomitant]

REACTIONS (3)
  - INTESTINAL OBSTRUCTION [None]
  - PANCREATITIS ACUTE [None]
  - PSEUDOCYST [None]
